FAERS Safety Report 20449318 (Version 2)
Quarter: 2022Q1

REPORT INFORMATION
  Report Type: Spontaneous
  Country: BR (occurrence: BR)
  Receive Date: 20220209
  Receipt Date: 20220301
  Transmission Date: 20220423
  Serious: Yes (Other)
  Sender: FDA-Public Use
  Company Number: BR-LUPIN PHARMACEUTICALS INC.-2022-01472

PATIENT
  Sex: Female

DRUGS (15)
  1. MORPHINE [Suspect]
     Active Substance: MORPHINE
     Indication: Product used for unknown indication
     Dosage: UNK
     Route: 064
  2. METHYLPREDNISOLONE [Suspect]
     Active Substance: METHYLPREDNISOLONE
     Indication: Severe acute respiratory syndrome
     Dosage: UNK
     Route: 064
  3. CARVEDILOL [Suspect]
     Active Substance: CARVEDILOL
     Indication: Heart disease congenital
     Dosage: UNK
     Route: 064
  4. FUROSEMIDE [Suspect]
     Active Substance: FUROSEMIDE
     Indication: Heart disease congenital
     Dosage: UNK
     Route: 064
  5. WARFARIN [Suspect]
     Active Substance: WARFARIN
     Indication: Anticoagulant therapy
     Dosage: UNK
     Route: 064
  6. PIPERACILLIN SODIUM\TAZOBACTAM SODIUM [Suspect]
     Active Substance: PIPERACILLIN SODIUM\TAZOBACTAM SODIUM
     Indication: Severe acute respiratory syndrome
     Dosage: UNK
     Route: 064
  7. HEPARIN [Suspect]
     Active Substance: HEPARIN SODIUM
     Indication: Anticoagulant therapy
     Dosage: UNK
     Route: 064
  8. AMIODARONE [Suspect]
     Active Substance: AMIODARONE
     Indication: Product used for unknown indication
     Dosage: UNK
     Route: 064
  9. NOREPINEPHRINE [Suspect]
     Active Substance: NOREPINEPHRINE
     Indication: Product used for unknown indication
     Dosage: UNK
     Route: 064
  10. DOBUTAMINE [Suspect]
     Active Substance: DOBUTAMINE HYDROCHLORIDE
     Indication: Product used for unknown indication
     Dosage: UNK
     Route: 064
  11. MEROPENEM [Suspect]
     Active Substance: MEROPENEM
     Indication: Severe acute respiratory syndrome
     Dosage: UNK
     Route: 064
  12. POLYMYXIN B [Suspect]
     Active Substance: POLYMYXIN B
     Indication: Severe acute respiratory syndrome
     Dosage: UNK
     Route: 064
  13. AMIKACIN [Suspect]
     Active Substance: AMIKACIN
     Indication: Severe acute respiratory syndrome
     Dosage: UNK
     Route: 064
  14. DAPTOMYCIN [Suspect]
     Active Substance: DAPTOMYCIN
     Indication: Severe acute respiratory syndrome
     Dosage: UNK
     Route: 064
  15. DULOXETINE [Suspect]
     Active Substance: DULOXETINE

REACTIONS (4)
  - Premature baby [Unknown]
  - Low birth weight baby [Unknown]
  - Foetal distress syndrome [Unknown]
  - Foetal exposure during pregnancy [Unknown]

NARRATIVE: CASE EVENT DATE: 20200601
